FAERS Safety Report 25572109 (Version 1)
Quarter: 2025Q3

REPORT INFORMATION
  Report Type: Report from Study
  Country: US (occurrence: US)
  Receive Date: 20250717
  Receipt Date: 20250717
  Transmission Date: 20251020
  Serious: Yes (Hospitalization, Other)
  Sender: ABBVIE
  Company Number: US-ABBVIE-6372449

PATIENT
  Age: 52 Year
  Sex: Female

DRUGS (1)
  1. CREON [Suspect]
     Active Substance: PANCRELIPASE AMYLASE\PANCRELIPASE LIPASE\PANCRELIPASE PROTEASE
     Indication: Product used for unknown indication
     Route: 048
     Dates: start: 20250321

REACTIONS (8)
  - Squamous cell carcinoma [Recovering/Resolving]
  - Meningitis viral [Recovered/Resolved]
  - Cough [Unknown]
  - Nasal congestion [Unknown]
  - Fatigue [Unknown]
  - Pyrexia [Unknown]
  - Fatigue [Recovered/Resolved]
  - Viral infection [Unknown]

NARRATIVE: CASE EVENT DATE: 20250101
